FAERS Safety Report 18853613 (Version 1)
Quarter: 2021Q1

REPORT INFORMATION
  Report Type: Spontaneous
  Country: AU (occurrence: AU)
  Receive Date: 20210205
  Receipt Date: 20210205
  Transmission Date: 20210420
  Serious: Yes (Death)
  Sender: FDA-Public Use
  Company Number: AU-EISAI MEDICAL RESEARCH-EC-2021-087435

PATIENT
  Age: 45 Year
  Sex: Female

DRUGS (1)
  1. HALAVEN [Suspect]
     Active Substance: ERIBULIN MESYLATE
     Indication: TRIPLE NEGATIVE BREAST CANCER
     Dosage: DOSE UNKNOWN
     Route: 042

REACTIONS (1)
  - Hepatic failure [Fatal]
